FAERS Safety Report 6992006-3 (Version None)
Quarter: 2010Q3

REPORT INFORMATION
  Report Type: 
  Country: None (occurrence: None)
  Receive Date: 20100917
  Receipt Date: 20100907
  Transmission Date: 20110219
  Serious: Yes (Other)
  Sender: FDA-Public Use
  Company Number: JP-PFIZER INC-2010091352

PATIENT
  Age: 69 Year
  Sex: Male

DRUGS (2)
  1. SUTENT [Suspect]
     Indication: RENAL CELL CARCINOMA
     Dosage: 50 MG, 1X/DAY
     Route: 048
     Dates: start: 20100716, end: 20100701
  2. SUTENT [Suspect]
     Dosage: 37.5 MG, 1X/DAY
     Route: 048
     Dates: start: 20100729, end: 20100825

REACTIONS (5)
  - EPISTAXIS [None]
  - EYE HAEMORRHAGE [None]
  - HYPERTENSION [None]
  - INTESTINAL HAEMORRHAGE [None]
  - PYREXIA [None]
